FAERS Safety Report 5273860-2 (Version None)
Quarter: 2007Q1

REPORT INFORMATION
  Report Type: 
  Country: None (occurrence: None)
  Receive Date: 20070323
  Receipt Date: 20070312
  Transmission Date: 20070707
  Serious: Yes (Hospitalization)
  Sender: FDA-Public Use
  Company Number: JP-ROCHE-485106

PATIENT
  Age: 21 Year
  Sex: Male

DRUGS (9)
  1. TAMIFLU [Suspect]
     Route: 048
     Dates: start: 20070224, end: 20070225
  2. TAMIFLU [Suspect]
     Route: 048
     Dates: start: 20070223, end: 20070223
  3. DEPAKENE [Concomitant]
     Dosage: FORM REPORTED AS ORAL FORMULATION, NOT OTHER SPECIFIED.
     Route: 048
  4. DEPAKENE [Concomitant]
     Route: 048
  5. LANDSEN [Concomitant]
     Route: 048
     Dates: start: 20030828
  6. CALONAL [Concomitant]
     Dosage: GENERIC REPORTED AS ACETAMINOPHEN.
     Route: 048
     Dates: start: 20070222, end: 20070223
  7. FLOMOX [Concomitant]
     Route: 048
     Dates: start: 20070222, end: 20070223
  8. MUCOSTA [Concomitant]
     Route: 048
     Dates: start: 20070222, end: 20070223
  9. PIROMIDIC ACID [Concomitant]
     Dosage: TRADE NAME REPORTED AS UNKNOWN.

REACTIONS (1)
  - PANCREATITIS ACUTE [None]
